FAERS Safety Report 9176859 (Version 1)
Quarter: 2013Q1

REPORT INFORMATION
  Report Type: Spontaneous
  Country: US (occurrence: US)
  Receive Date: 20130321
  Receipt Date: 20130321
  Transmission Date: 20140127
  Serious: Yes (Death)
  Sender: FDA-Public Use
  Company Number: PHEH2013US006365

PATIENT
  Age: 53 Year
  Sex: Female

DRUGS (1)
  1. TOBI [Suspect]
     Indication: PSEUDOMONAS INFECTION
     Dosage: 300 UKN, (EOD FOR 28 DAYS AND SKIP 28 DAYS)
     Dates: start: 20120412

REACTIONS (1)
  - Death [Fatal]
